APPROVED DRUG PRODUCT: ERYTHROMYCIN
Active Ingredient: ERYTHROMYCIN
Strength: 2%
Dosage Form/Route: SWAB;TOPICAL
Application: A090215 | Product #001 | TE Code: AT
Applicant: EPIC PHARMA LLC
Approved: May 12, 2010 | RLD: No | RS: No | Type: RX